FAERS Safety Report 5419999-X (Version None)
Quarter: 2007Q3

REPORT INFORMATION
  Report Type: 
  Country: None (occurrence: None)
  Receive Date: 20070815
  Receipt Date: 20070730
  Transmission Date: 20080115
  Serious: Yes (Other)
  Sender: FDA-Public Use
  Company Number: 2007JP003338

PATIENT
  Age: 87 Year
  Sex: Male

DRUGS (4)
  1. FUNGUARD(MICAFUNGIN) INJECTION [Suspect]
     Indication: FUNGAL INFECTION
     Dosage: 50 MG, BID, IV DRIP
     Route: 041
  2. BIAPENEM (BIAPENEM) INJECTION [Concomitant]
  3. PAZUFLOXACIN MESILATE INJECTION [Concomitant]
  4. FAMOTIDINE [Concomitant]

REACTIONS (5)
  - ANAEMIA [None]
  - GASTROINTESTINAL HAEMORRHAGE [None]
  - GENERAL PHYSICAL HEALTH DETERIORATION [None]
  - MULTI-ORGAN FAILURE [None]
  - PNEUMONIA STAPHYLOCOCCAL [None]
